FAERS Safety Report 14579067 (Version 9)
Quarter: 2018Q3

REPORT INFORMATION
  Report Type: Report from Study
  Country: AU (occurrence: AU)
  Receive Date: 20180227
  Receipt Date: 20180904
  Transmission Date: 20181010
  Serious: Yes (Death, Hospitalization)
  Sender: FDA-Public Use
  Company Number: AU-EISAI MEDICAL RESEARCH-EC-2018-036445

PATIENT
  Age: 85 Year
  Sex: Male
  Weight: 79.4 kg

DRUGS (18)
  1. EVEROLIMUS. [Suspect]
     Active Substance: EVEROLIMUS
     Indication: CLEAR CELL RENAL CELL CARCINOMA
     Route: 048
     Dates: start: 20180207, end: 2018
  2. CODEINE LINCTUS [Concomitant]
     Active Substance: CHLOROFORM\CODEINE PHOSPHATE\DRIMIA MARITIMA BULB
  3. METFORMIN [Concomitant]
     Active Substance: METFORMIN HYDROCHLORIDE
  4. EVEROLIMUS. [Suspect]
     Active Substance: EVEROLIMUS
     Route: 048
     Dates: start: 20180606, end: 20180607
  5. HORSERADISH AND GARLIC [Concomitant]
  6. GLUCOSAMINE [Concomitant]
     Active Substance: GLUCOSAMINE
  7. LENVATINIB [Suspect]
     Active Substance: LENVATINIB
     Indication: CLEAR CELL RENAL CELL CARCINOMA
     Route: 048
     Dates: start: 20180207, end: 20180220
  8. FISH OIL [Concomitant]
     Active Substance: FISH OIL
  9. INDAPAMIDE. [Concomitant]
     Active Substance: INDAPAMIDE
  10. DAPTA [Concomitant]
  11. MINIPRESS [Concomitant]
     Active Substance: PRAZOSIN HYDROCHLORIDE
  12. IRBESARTAN. [Concomitant]
     Active Substance: IRBESARTAN
  13. LENVATINIB [Suspect]
     Active Substance: LENVATINIB
     Route: 048
     Dates: start: 2018, end: 20180703
  14. KARVEA [Concomitant]
     Active Substance: IRBESARTAN
  15. EVEROLIMUS. [Suspect]
     Active Substance: EVEROLIMUS
     Route: 048
     Dates: start: 2018, end: 20180703
  16. PRAZOSIN. [Concomitant]
     Active Substance: PRAZOSIN
  17. LENVATINIB [Suspect]
     Active Substance: LENVATINIB
     Route: 048
     Dates: start: 20180315, end: 20180607
  18. ENDONE [Concomitant]
     Active Substance: OXYCODONE HYDROCHLORIDE

REACTIONS (7)
  - Seizure like phenomena [Recovered/Resolved]
  - Haemoptysis [Recovering/Resolving]
  - Fall [Recovered/Resolved]
  - Hypertension [Recovered/Resolved]
  - Urosepsis [Fatal]
  - Accidental overdose [Recovered/Resolved]
  - Internal haemorrhage [Fatal]

NARRATIVE: CASE EVENT DATE: 20180207
